FAERS Safety Report 8052947-5 (Version None)
Quarter: 2012Q1

REPORT INFORMATION
  Report Type: 
  Country: None (occurrence: None)
  Receive Date: 20120118
  Receipt Date: 20120109
  Transmission Date: 20120608
  Serious: Yes (Hospitalization)
  Sender: FDA-Public Use
  Company Number: US-BAYER-2010-003073

PATIENT
  Age: 27 Year
  Sex: Female
  Weight: 79 kg

DRUGS (1)
  1. YASMIN [Suspect]
     Dosage: UNK
     Route: 048
     Dates: start: 20031101, end: 20090801

REACTIONS (7)
  - CHOLELITHIASIS [None]
  - PAIN [None]
  - FEAR [None]
  - QUALITY OF LIFE DECREASED [None]
  - ANHEDONIA [None]
  - ANXIETY [None]
  - GALLBLADDER DISORDER [None]
